FAERS Safety Report 20867058 (Version 2)
Quarter: 2022Q2

REPORT INFORMATION
  Report Type: Spontaneous
  Country: US (occurrence: US)
  Receive Date: 20220524
  Receipt Date: 20220601
  Transmission Date: 20220720
  Serious: No
  Sender: FDA-Public Use
  Company Number: US-ALKERMES INC.-ALK-2022-002450

PATIENT
  Sex: Male
  Weight: 90.703 kg

DRUGS (4)
  1. ARISTADA [Suspect]
     Active Substance: ARIPIPRAZOLE LAUROXIL
     Indication: Schizoaffective disorder
     Dosage: 1064 MILLIGRAM, Q2MO
     Route: 030
     Dates: start: 20220420
  2. ARISTADA [Suspect]
     Active Substance: ARIPIPRAZOLE LAUROXIL
     Indication: Borderline personality disorder
  3. ARIPIPRAZOLE [Concomitant]
     Active Substance: ARIPIPRAZOLE
     Indication: Schizoaffective disorder
     Dosage: 30 MILLIGRAM, ONE TIME DOSE
     Route: 048
     Dates: start: 20220420, end: 20220420
  4. ARIPIPRAZOLE [Concomitant]
     Active Substance: ARIPIPRAZOLE
     Indication: Borderline personality disorder

REACTIONS (9)
  - Off label use [Not Recovered/Not Resolved]
  - Panic attack [Not Recovered/Not Resolved]
  - Psychotic disorder [Not Recovered/Not Resolved]
  - Hallucination [Not Recovered/Not Resolved]
  - COVID-19 [Unknown]
  - Delusion [Unknown]
  - Product administration error [Recovered/Resolved]
  - Middle insomnia [Not Recovered/Not Resolved]
  - Weight increased [Unknown]

NARRATIVE: CASE EVENT DATE: 20220101
